FAERS Safety Report 24823885 (Version 1)
Quarter: 2025Q1

REPORT INFORMATION
  Report Type: Spontaneous
  Country: US (occurrence: US)
  Receive Date: 20250109
  Receipt Date: 20250109
  Transmission Date: 20250409
  Serious: No
  Sender: ALKEM
  Company Number: US-ALKEM LABORATORIES LIMITED-US-ALKEM-2023-17245

PATIENT
  Age: 37 Year
  Sex: Female

DRUGS (4)
  1. DEFERASIROX [Suspect]
     Active Substance: DEFERASIROX
     Indication: Thalassaemia
     Dosage: 27.5 MILLIGRAM/KILOGRAM, QD, (CHELATION AT ENTRY DOSE)
     Route: 065
  2. DEFERASIROX [Suspect]
     Active Substance: DEFERASIROX
     Dosage: 31 MILLIGRAM/KILOGRAM, QD, (END DOSE)
     Route: 065
  3. DEFERIPRONE [Suspect]
     Active Substance: DEFERIPRONE
     Indication: Thalassaemia
     Dosage: 75 MILLIGRAM/KILOGRAM, QD, (END DOSE)
     Route: 065
  4. DEFEROXAMINE [Suspect]
     Active Substance: DEFEROXAMINE MESYLATE
     Indication: Thalassaemia
     Dosage: 44 MILLIGRAM/KILOGRAM, QD, (CHELATION AT ENTRY DOSE)
     Route: 065

REACTIONS (1)
  - Treatment noncompliance [Unknown]
